FAERS Safety Report 8907422 (Version 2)
Quarter: 2012Q4

REPORT INFORMATION
  Report Type: 
  Country: US (occurrence: US)
  Receive Date: 20121114
  Receipt Date: 20121203
  Transmission Date: 20130627
  Serious: No
  Sender: FDA-Public Use
  Company Number: US-BIOGENIDEC-2012BI051601

PATIENT
  Sex: Male

DRUGS (1)
  1. AVONEX [Suspect]
     Indication: MULTIPLE SCLEROSIS
     Route: 030
     Dates: start: 20120607

REACTIONS (7)
  - Hernia [Recovered/Resolved]
  - Swelling face [Recovered/Resolved]
  - Amnesia [Unknown]
  - Pharyngitis streptococcal [Unknown]
  - Decreased appetite [Unknown]
  - Confusional state [Unknown]
  - Depression [Not Recovered/Not Resolved]
